FAERS Safety Report 4306095-8 (Version None)
Quarter: 2004Q1

REPORT INFORMATION
  Report Type: 
  Country: None (occurrence: None)
  Receive Date: 20040225
  Receipt Date: 20030203
  Transmission Date: 20041129
  Serious: No
  Sender: FDA-Public Use
  Company Number: US-BRISTOL-MYERS SQUIBB COMPANY-12184602

PATIENT
  Age: 57 Year
  Sex: Female
  Weight: 67 kg

DRUGS (4)
  1. EXCEDRIN (MIGRAINE) [Suspect]
     Indication: MIGRAINE
     Route: 048
  2. MULTI-VITAMIN [Concomitant]
  3. ESTRACE [Concomitant]
  4. MECLIZINE [Concomitant]

REACTIONS (1)
  - DRUG INEFFECTIVE [None]
